FAERS Safety Report 6590262-7 (Version None)
Quarter: 2010Q1

REPORT INFORMATION
  Report Type: 
  Country: None (occurrence: None)
  Receive Date: 20100219
  Receipt Date: 20100211
  Transmission Date: 20100710
  Serious: Yes (Other)
  Sender: FDA-Public Use
  Company Number: PHHY2010RO07593

PATIENT
  Sex: Male

DRUGS (4)
  1. EXJADE [Suspect]
     Indication: THALASSAEMIA
     Dosage: 20 MG/KG, UNK
     Route: 048
  2. LIV-52 [Concomitant]
  3. FOLIC ACID [Concomitant]
  4. VITAMIN B6 [Concomitant]

REACTIONS (1)
  - HYPERBILIRUBINAEMIA [None]
